FAERS Safety Report 6461955-7 (Version None)
Quarter: 2009Q4

REPORT INFORMATION
  Report Type: 
  Country: None (occurrence: None)
  Receive Date: 20091130
  Receipt Date: 20091123
  Transmission Date: 20100525
  Serious: Yes (Other)
  Sender: FDA-Public Use
  Company Number: FR-ROCHE-663328

PATIENT
  Sex: Male

DRUGS (10)
  1. MIRCERA [Suspect]
     Route: 058
     Dates: start: 20090813, end: 20090827
  2. ALLOPURINOL [Concomitant]
     Indication: DRUG USE FOR UNKNOWN INDICATION
  3. TENORMIN [Concomitant]
     Indication: DRUG USE FOR UNKNOWN INDICATION
  4. EUPRESSYL [Concomitant]
     Indication: DRUG USE FOR UNKNOWN INDICATION
  5. PREVISCAN [Concomitant]
     Indication: DRUG USE FOR UNKNOWN INDICATION
  6. AVANDAMET [Concomitant]
     Indication: DRUG USE FOR UNKNOWN INDICATION
  7. CRESTOR [Concomitant]
     Indication: DRUG USE FOR UNKNOWN INDICATION
  8. LASILIX [Concomitant]
     Indication: DRUG USE FOR UNKNOWN INDICATION
  9. MAGNE B6 [Concomitant]
     Indication: DRUG USE FOR UNKNOWN INDICATION
  10. DI-ANTALVIC [Concomitant]
     Indication: DRUG USE FOR UNKNOWN INDICATION

REACTIONS (4)
  - BURNING SENSATION [None]
  - ERYTHEMA [None]
  - SKIN EXFOLIATION [None]
  - STOMATITIS [None]
